FAERS Safety Report 18676141 (Version 1)
Quarter: 2020Q4

REPORT INFORMATION
  Report Type: Spontaneous
  Country: US (occurrence: US)
  Receive Date: 20201228
  Receipt Date: 20201228
  Transmission Date: 20210114
  Serious: Yes (Hospitalization)
  Sender: FDA-Public Use
  Company Number: None

PATIENT
  Age: 68 Year
  Sex: Female

DRUGS (12)
  1. SOTALOL HCL [Concomitant]
     Active Substance: SOTALOL
  2. SPIRONOLACT [Concomitant]
     Active Substance: SPIRONOLACTONE
  3. POT CL MICRO ER [Concomitant]
  4. CHLORASEPTIC SORE THROAT [Concomitant]
     Active Substance: PHENOL
  5. ELIQUIS [Concomitant]
     Active Substance: APIXABAN
  6. SILDENAFIL 20MG TAB [Suspect]
     Active Substance: SILDENAFIL
     Indication: SARCOIDOSIS
     Route: 048
     Dates: start: 20200717
  7. ALENDRONATE [Concomitant]
     Active Substance: ALENDRONATE SODIUM
  8. HYDROCO/APAP [Suspect]
     Active Substance: ACETAMINOPHEN\HYDROCODONE
  9. PANTOPRAZOLE SODIUM. [Concomitant]
     Active Substance: PANTOPRAZOLE SODIUM
  10. DICLOFENAC GEL [Concomitant]
     Active Substance: DICLOFENAC
  11. FUROSEMIDE. [Concomitant]
     Active Substance: FUROSEMIDE
  12. LEVOTHYROXIN [Concomitant]
     Active Substance: LEVOTHYROXINE

REACTIONS (1)
  - Thyroidectomy [None]

NARRATIVE: CASE EVENT DATE: 20201221
